FAERS Safety Report 9973640 (Version 1)
Quarter: 2014Q1

REPORT INFORMATION
  Report Type: Spontaneous
  Country: PT (occurrence: PT)
  Receive Date: 20140306
  Receipt Date: 20140306
  Transmission Date: 20141002
  Serious: Yes (Hospitalization)
  Sender: FDA-Public Use
  Company Number: PHHY2014PT023793

PATIENT
  Age: 61 Year
  Sex: Female

DRUGS (14)
  1. PIPERACILLIN+TAZOBACTAM [Suspect]
     Dosage: 2.25 G, UNK
  2. OMEPRAZOLE [Concomitant]
  3. METFORMIN [Concomitant]
  4. GLIMEPIRIDE [Concomitant]
  5. VILDAGLIPTIN [Concomitant]
  6. GABAPENTIN [Concomitant]
  7. CLOPIDOGREL [Concomitant]
  8. PRAVASTATIN [Concomitant]
  9. AMITRIPTYLINE [Concomitant]
  10. AMLODIPINE [Concomitant]
  11. METAMIZOLE [Concomitant]
     Dosage: 2 G, UNK
  12. ENOXAPARIN [Concomitant]
  13. LINEZOLID [Concomitant]
  14. MEROPENEM [Concomitant]

REACTIONS (14)
  - Tubulointerstitial nephritis [Recovered/Resolved]
  - Body temperature increased [Unknown]
  - Nephritis allergic [Recovered/Resolved]
  - Renal impairment [Recovered/Resolved]
  - Leukocytosis [Recovering/Resolving]
  - Eosinophilia [Recovered/Resolved]
  - Proteinuria [Recovered/Resolved]
  - Haematuria [Recovered/Resolved]
  - Leukocyturia [Recovered/Resolved]
  - Metabolic acidosis [Unknown]
  - Skin lesion [Recovered/Resolved]
  - Rash maculo-papular [Recovered/Resolved]
  - Rash morbilliform [Recovered/Resolved]
  - Pruritus [Recovered/Resolved]
